FAERS Safety Report 12235407 (Version 1)
Quarter: 2016Q2

REPORT INFORMATION
  Report Type: Spontaneous
  Country: US (occurrence: US)
  Receive Date: 20160404
  Receipt Date: 20160404
  Transmission Date: 20160815
  Serious: Yes (Other)
  Sender: FDA-Public Use
  Company Number: US-MDT-ADR-2016-00027

PATIENT
  Age: 11 Year
  Sex: Male

DRUGS (1)
  1. LIORESAL [Suspect]
     Active Substance: BACLOFEN
     Indication: MUSCLE SPASTICITY
     Dosage: 499.2 MCG/DAY
     Route: 037

REACTIONS (3)
  - Tremor [Recovered/Resolved]
  - Drug withdrawal syndrome [Recovered/Resolved]
  - Depressed level of consciousness [Recovered/Resolved]
